FAERS Safety Report 24096333 (Version 1)
Quarter: 2024Q3

REPORT INFORMATION
  Report Type: Spontaneous
  Country: US (occurrence: None)
  Receive Date: 20240715
  Receipt Date: 20240715
  Transmission Date: 20241017
  Serious: Yes (Hospitalization)
  Sender: Public
  Company Number: None

PATIENT
  Age: 20 Year
  Sex: Male

DRUGS (2)
  1. VIGABATRIN [Suspect]
     Active Substance: VIGABATRIN
     Indication: Focal dyscognitive seizures
     Dosage: FREQUENCY : TWICE A DAY;?
     Route: 048
     Dates: start: 202312
  2. AUSTEDO XR [Concomitant]
     Active Substance: DEUTETRABENAZINE

REACTIONS (3)
  - Parainfluenzae virus infection [None]
  - Sedation [None]
  - Drug level increased [None]

NARRATIVE: CASE EVENT DATE: 20240520
